FAERS Safety Report 8597989-6 (Version None)
Quarter: 2012Q3

REPORT INFORMATION
  Report Type: 
  Country: None (occurrence: None)
  Receive Date: 20120816
  Receipt Date: 20120809
  Transmission Date: 20120928
  Serious: Yes (Hospitalization)
  Sender: FDA-Public Use
  Company Number: DE-BRISTOL-MYERS SQUIBB COMPANY-16833162

PATIENT
  Age: 56 Year
  Sex: Male
  Weight: 58 kg

DRUGS (4)
  1. DOCETAXEL [Suspect]
     Indication: HEAD AND NECK CANCER METASTATIC
     Dates: start: 20120430
  2. CETUXIMAB [Suspect]
     Indication: HEAD AND NECK CANCER METASTATIC
     Route: 042
     Dates: start: 20120430
  3. CISPLATIN [Suspect]
     Indication: HEAD AND NECK CANCER METASTATIC
     Dates: start: 20120430
  4. FLUOROURACIL [Suspect]
     Indication: HEAD AND NECK CANCER METASTATIC
     Dates: start: 20120430

REACTIONS (1)
  - RENAL FAILURE [None]
